FAERS Safety Report 8085548-3 (Version None)
Quarter: 2012Q1

REPORT INFORMATION
  Report Type: 
  Country: None (occurrence: None)
  Receive Date: 20120128
  Receipt Date: 20110411
  Transmission Date: 20120608
  Serious: No
  Sender: FDA-Public Use
  Company Number: US-ABBOTT-11P-163-0713099-00

PATIENT
  Sex: Female
  Weight: 72.186 kg

DRUGS (8)
  1. LEXAPRO [Concomitant]
     Indication: DEPRESSION
  2. PREDNISONE TAB [Concomitant]
     Indication: ANKYLOSING SPONDYLITIS
  3. SINGULAIR [Concomitant]
     Indication: ASTHMA
  4. HUMIRA [Suspect]
     Indication: ANKYLOSING SPONDYLITIS
     Dates: start: 20110101
  5. NEXIUM [Concomitant]
     Indication: GASTROOESOPHAGEAL REFLUX DISEASE
  6. ZANAFLEX [Concomitant]
     Indication: MUSCLE RELAXANT THERAPY
  7. IMITREX [Concomitant]
     Indication: MIGRAINE
  8. UNKNOWN PAIN MEDICATIONS [Concomitant]
     Indication: PAIN

REACTIONS (3)
  - GAIT DISTURBANCE [None]
  - ARTHRALGIA [None]
  - WRONG TECHNIQUE IN DRUG USAGE PROCESS [None]
